FAERS Safety Report 4857890-8 (Version None)
Quarter: 2005Q4

REPORT INFORMATION
  Report Type: 
  Country: None (occurrence: None)
  Receive Date: 20051219
  Receipt Date: 20050419
  Transmission Date: 20060501
  Serious: No
  Sender: FDA-Public Use
  Company Number: US-GLAXOSMITHKLINE-A0554629A

PATIENT
  Age: 60 Year
  Sex: Female

DRUGS (3)
  1. NICODERM CQ [Suspect]
     Dates: start: 20050411
  2. NICODERM CQ [Suspect]
  3. ACIPHEX [Concomitant]

REACTIONS (8)
  - ANXIETY [None]
  - APPLICATION SITE ERYTHEMA [None]
  - APPLICATION SITE IRRITATION [None]
  - APPLICATION SITE REACTION [None]
  - GASTROOESOPHAGEAL REFLUX DISEASE [None]
  - HYPERPHAGIA [None]
  - PARAESTHESIA [None]
  - WEIGHT INCREASED [None]
